FAERS Safety Report 5097046-X (Version None)
Quarter: 2006Q3

REPORT INFORMATION
  Report Type: 
  Country: None (occurrence: None)
  Receive Date: 20060901
  Receipt Date: 20060822
  Transmission Date: 20061208
  Serious: Yes (Life-Threatening)
  Sender: FDA-Public Use
  Company Number: 2006102981

PATIENT
  Age: 81 Year
  Sex: Female

DRUGS (5)
  1. DOXAZOSIN (DOXAZOSIN) [Suspect]
     Indication: HYPERTENSION
     Dosage: (2  MG), ORAL
     Route: 048
  2. RAMIPRIL [Suspect]
     Indication: HYPERTENSION
     Dosage: (10 MG), ORAL
     Route: 048
  3. ASPIRIN [Concomitant]
  4. LERCANIDIPINE [Concomitant]
  5. SIMVASTATIN [Concomitant]

REACTIONS (1)
  - ANGIONEUROTIC OEDEMA [None]
